FAERS Safety Report 8829926 (Version 2)
Quarter: 2012Q4

REPORT INFORMATION
  Report Type: 
  Country: US (occurrence: US)
  Receive Date: 20121008
  Receipt Date: 20121023
  Transmission Date: 20130627
  Serious: Yes (Death, Hospitalization)
  Sender: FDA-Public Use
  Company Number: US-ROCHE-1131226

PATIENT
  Sex: Female

DRUGS (3)
  1. RITUXAN [Suspect]
     Indication: SYSTEMIC LUPUS ERYTHEMATOSUS
     Route: 065
  2. RITUXAN [Suspect]
     Indication: LUPUS ENDOCARDITIS
  3. RITUXAN [Suspect]
     Indication: OFF LABEL USE

REACTIONS (13)
  - Systemic lupus erythematosus [Fatal]
  - Infection [Fatal]
  - Urinary tract infection [Unknown]
  - White blood cell count increased [Unknown]
  - Haemoptysis [Unknown]
  - Dyspnoea [Unknown]
  - Haematocrit decreased [Unknown]
  - Plasmapheresis [Unknown]
  - International normalised ratio increased [Unknown]
  - Haemoglobin decreased [Unknown]
  - Acute abdomen [Unknown]
  - Pancreatic necrosis [Unknown]
  - Abscess [Unknown]
